FAERS Safety Report 23666946 (Version 2)
Quarter: 2024Q2

REPORT INFORMATION
  Report Type: Spontaneous
  Country: CA (occurrence: CA)
  Receive Date: 20240325
  Receipt Date: 20240517
  Transmission Date: 20240716
  Serious: Yes (Death)
  Sender: FDA-Public Use
  Company Number: CA-SANDOZ-SDZ2024CA031640

PATIENT
  Age: 29 Year
  Sex: Male
  Weight: 89 kg

DRUGS (5)
  1. ALPRAZOLAM [Suspect]
     Active Substance: ALPRAZOLAM
     Indication: Product used for unknown indication
     Dosage: UNK
     Route: 065
  2. DULOXETINE [Suspect]
     Active Substance: DULOXETINE
     Indication: Product used for unknown indication
     Dosage: UNK
     Route: 065
  3. GABAPENTIN [Suspect]
     Active Substance: GABAPENTIN
     Indication: Product used for unknown indication
     Dosage: UNK
     Route: 065
  4. NORTRIPTYLINE [Suspect]
     Active Substance: NORTRIPTYLINE
     Indication: Product used for unknown indication
     Route: 065
  5. QUETIAPINE [Suspect]
     Active Substance: QUETIAPINE
     Indication: Product used for unknown indication
     Dosage: UNK
     Route: 065

REACTIONS (2)
  - Toxicity to various agents [Fatal]
  - Overdose [Fatal]
